FAERS Safety Report 8767409 (Version 2)
Quarter: 2012Q4

REPORT INFORMATION
  Report Type: 
  Country: US (occurrence: US)
  Receive Date: 20120904
  Receipt Date: 20121106
  Transmission Date: 20130627
  Serious: Yes (Other)
  Sender: FDA-Public Use
  Company Number: US-JNJFOC-20120815074

PATIENT
  Age: 65 Year
  Sex: Male
  Weight: 91.63 kg

DRUGS (15)
  1. REMICADE [Suspect]
     Indication: COLITIS ULCERATIVE
     Route: 042
     Dates: start: 2012
  2. REMICADE [Suspect]
     Indication: COLITIS ULCERATIVE
     Route: 042
     Dates: start: 20120815
  3. AZATHIOPRINE [Suspect]
     Indication: COLITIS ULCERATIVE
     Route: 048
     Dates: start: 20050826
  4. TESTOSTERONE [Suspect]
     Indication: PRODUCT USED FOR UNKNOWN INDICATION
     Route: 030
     Dates: start: 2004
  5. PLAVIX [Concomitant]
     Indication: ARTERIOSCLEROSIS CORONARY ARTERY
     Route: 065
     Dates: start: 1998
  6. PLAVIX [Concomitant]
     Indication: ARTERIOSCLEROSIS
     Route: 065
     Dates: start: 1998
  7. ATORVASTATIN [Concomitant]
     Indication: ARTERIOSCLEROSIS CORONARY ARTERY
     Route: 065
     Dates: start: 1998
  8. ATORVASTATIN [Concomitant]
     Indication: ARTERIOSCLEROSIS
     Route: 065
     Dates: start: 1998
  9. METOPROLOL [Concomitant]
     Indication: ARTERIOSCLEROSIS CORONARY ARTERY
     Route: 065
     Dates: start: 2009
  10. METOPROLOL [Concomitant]
     Indication: ARTERIOSCLEROSIS
     Route: 065
     Dates: start: 2009
  11. LOSARTAN [Concomitant]
     Indication: ARTERIOSCLEROSIS CORONARY ARTERY
     Route: 065
     Dates: start: 2011
  12. LOSARTAN [Concomitant]
     Indication: ARTERIOSCLEROSIS
     Route: 065
     Dates: start: 2011
  13. COLAZAL [Concomitant]
     Indication: COLITIS ULCERATIVE
     Route: 065
     Dates: start: 201205
  14. ASPIRIN [Concomitant]
     Indication: ARTERIOSCLEROSIS CORONARY ARTERY
     Route: 065
     Dates: start: 2005
  15. ASPIRIN [Concomitant]
     Indication: ARTERIOSCLEROSIS
     Route: 065
     Dates: start: 2005

REACTIONS (1)
  - Bladder cancer [Recovered/Resolved]
